FAERS Safety Report 6109469-8 (Version None)
Quarter: 2009Q1

REPORT INFORMATION
  Report Type: 
  Country: None (occurrence: None)
  Receive Date: 20090306
  Receipt Date: 20090220
  Transmission Date: 20090719
  Serious: Yes (Hospitalization)
  Sender: FDA-Public Use
  Company Number: KV200800509

PATIENT
  Age: 62 Year
  Sex: Female
  Weight: 74.8 kg

DRUGS (6)
  1. ISOSORBIDE MONONITRATE [Suspect]
     Indication: CHEST PAIN
     Dosage: 30 MG, QD, ORAL
     Route: 048
     Dates: start: 20050101, end: 20081201
  2. SYNTHROID [Concomitant]
  3. OMEGA 3 FISH OIL (FISH OIL) [Concomitant]
  4. MULTIVITAMIN (VITAMIN NOS) [Concomitant]
  5. ASPIRIN [Concomitant]
  6. TRICOR [Concomitant]

REACTIONS (7)
  - DIZZINESS [None]
  - DYSPNOEA [None]
  - FLUSHING [None]
  - HEADACHE [None]
  - MIGRAINE [None]
  - PALPITATIONS [None]
  - PRODUCT QUALITY ISSUE [None]
